FAERS Safety Report 16029505 (Version 1)
Quarter: 2019Q1

REPORT INFORMATION
  Report Type: Spontaneous
  Country: US (occurrence: US)
  Receive Date: 20190304
  Receipt Date: 20190304
  Transmission Date: 20190418
  Serious: Yes (Other)
  Sender: FDA-Public Use
  Company Number: US-SA-2019SA059572

PATIENT
  Age: 78 Year
  Sex: Female

DRUGS (1)
  1. AUBAGIO [Suspect]
     Active Substance: TERIFLUNOMIDE
     Dosage: UNK UNK, QD
     Route: 048
     Dates: start: 201703

REACTIONS (7)
  - Pain in extremity [Unknown]
  - Multiple sclerosis relapse [Unknown]
  - Gastric disorder [Unknown]
  - Bladder dysfunction [Unknown]
  - Weight decreased [Unknown]
  - Dyspnoea [Unknown]
  - Functional gastrointestinal disorder [Unknown]

NARRATIVE: CASE EVENT DATE: 201811
